FAERS Safety Report 7631066-3 (Version None)
Quarter: 2011Q3

REPORT INFORMATION
  Report Type: 
  Country: None (occurrence: None)
  Receive Date: 20110715
  Receipt Date: 20110707
  Transmission Date: 20111222
  Serious: Yes (Hospitalization, Other)
  Sender: FDA-Public Use
  Company Number: 2011SP031934

PATIENT
  Age: 69 Year
  Sex: Male

DRUGS (12)
  1. OMEPRAZOLE [Concomitant]
  2. BISOPROLOL FUMARATE [Concomitant]
  3. ASPIRIN [Concomitant]
  4. MIRTAZAPINE [Suspect]
     Indication: DEPRESSION
     Dosage: 30 MG;QD;PO
     Route: 048
  5. ALVEDON FORTE [Concomitant]
  6. BEHEPAN [Concomitant]
  7. DIAZEPAM [Concomitant]
  8. ZOLPIDEM TARTRATE [Concomitant]
  9. HUMALOG [Concomitant]
  10. FELODIPINE [Concomitant]
  11. BRICANYL TURBOHALER [Concomitant]
  12. SODIUM CHLORIDE [Concomitant]

REACTIONS (2)
  - HYPERKALAEMIA [None]
  - INAPPROPRIATE ANTIDIURETIC HORMONE SECRETION [None]
